FAERS Safety Report 8400546-5 (Version None)
Quarter: 2012Q2

REPORT INFORMATION
  Report Type: 
  Country: None (occurrence: None)
  Receive Date: 20120531
  Receipt Date: 20120525
  Transmission Date: 20120825
  Serious: Yes (Hospitalization)
  Sender: FDA-Public Use
  Company Number: AU-B.I. PHARMACEUTICALS,INC./RIDGEFIELD-2012-AU-00692AU

PATIENT
  Sex: Male
  Weight: 88 kg

DRUGS (1)
  1. PRADAXA [Suspect]
     Indication: ATRIAL FIBRILLATION
     Dosage: 220 MG
     Dates: start: 20110721, end: 20111201

REACTIONS (5)
  - ANAEMIA [None]
  - HAEMOGLOBIN DECREASED [None]
  - FAECES DISCOLOURED [None]
  - INTRA-ABDOMINAL HAEMORRHAGE [None]
  - BLOOD PRESSURE DECREASED [None]
